FAERS Safety Report 9379265 (Version 1)
Quarter: 2013Q3

REPORT INFORMATION
  Report Type: Spontaneous
  Country: US (occurrence: US)
  Receive Date: 20130702
  Receipt Date: 20130702
  Transmission Date: 20140515
  Serious: Yes (Life-Threatening)
  Sender: FDA-Public Use
  Company Number: US-CELGENEUS-163-21880-13064252

PATIENT
  Sex: Male

DRUGS (3)
  1. REVLIMID [Suspect]
     Indication: PLASMA CELL MYELOMA
     Dosage: 5 MILLIGRAM
     Route: 048
     Dates: start: 201210
  2. REVLIMID [Suspect]
     Dosage: 10-5MG
     Route: 048
     Dates: start: 201210
  3. REVLIMID [Suspect]
     Dosage: 15-10MG
     Route: 048
     Dates: start: 201303, end: 2013

REACTIONS (3)
  - Cardiomyopathy [Unknown]
  - Atrial hypertrophy [Unknown]
  - Cardiac flutter [Unknown]
